FAERS Safety Report 9484370 (Version 1)
Quarter: 2013Q3

REPORT INFORMATION
  Report Type: Spontaneous
  Country: CA (occurrence: CA)
  Receive Date: 20130828
  Receipt Date: 20130828
  Transmission Date: 20140515
  Serious: Yes (Hospitalization)
  Sender: FDA-Public Use
  Company Number: CA-AMGEN-KDL409077

PATIENT
  Age: 42 Year
  Sex: Female
  Weight: 62.2 kg

DRUGS (5)
  1. ENBREL [Suspect]
     Indication: RHEUMATOID ARTHRITIS
     Dosage: UNK UNK, QWK
     Route: 065
     Dates: start: 20051205, end: 20090930
  2. PREDNISONE [Concomitant]
  3. ERGOCALCIFEROL [Concomitant]
  4. CALCIUM [Concomitant]
  5. METHOTREXATE [Concomitant]
     Dosage: UNK UNK, UNK
     Dates: end: 200903

REACTIONS (3)
  - Pleural effusion [Recovering/Resolving]
  - Inflammation [Unknown]
  - Gout [Unknown]
